FAERS Safety Report 12011667 (Version 2)
Quarter: 2016Q1

REPORT INFORMATION
  Report Type: Spontaneous
  Country: TR (occurrence: TR)
  Receive Date: 20160205
  Receipt Date: 20160226
  Transmission Date: 20160526
  Serious: Yes (Hospitalization, Other)
  Sender: FDA-Public Use
  Company Number: TR-WATSON-2016-02309

PATIENT
  Age: 32 Year
  Sex: Female

DRUGS (1)
  1. FENTANYL. [Suspect]
     Active Substance: FENTANYL
     Indication: ARTHRALGIA
     Dosage: 75 ?/H
     Route: 062

REACTIONS (7)
  - Syncope [Unknown]
  - Respiratory depression [Unknown]
  - Bradycardia [Unknown]
  - Intentional product misuse [Unknown]
  - Dizziness [Unknown]
  - Hypotension [Unknown]
  - Accidental overdose [Unknown]
